FAERS Safety Report 9530080 (Version 1)
Quarter: 2013Q3

REPORT INFORMATION
  Report Type: Report from Study
  Country: DE (occurrence: DE)
  Receive Date: 20130917
  Receipt Date: 20130917
  Transmission Date: 20140515
  Serious: Yes (Hospitalization)
  Sender: FDA-Public Use
  Company Number: DE-TEVA-433070USA

PATIENT
  Age: 46 Year
  Sex: Female

DRUGS (5)
  1. BENDAMUSTINE [Suspect]
     Indication: B-CELL LYMPHOMA
     Route: 042
     Dates: start: 20120425, end: 20120920
  2. RITUXIMAB [Suspect]
     Indication: B-CELL LYMPHOMA
     Route: 042
     Dates: start: 20130111, end: 20130722
  3. RITUXIMAB [Suspect]
     Route: 042
     Dates: start: 20130523
  4. PANTOPRAZOLE [Concomitant]
  5. LORAZEPAM [Concomitant]

REACTIONS (3)
  - Thrombosis in device [Recovered/Resolved]
  - Device related infection [Recovered/Resolved]
  - Neutropenia [Recovered/Resolved]
